FAERS Safety Report 7364254-4 (Version None)
Quarter: 2011Q1

REPORT INFORMATION
  Report Type: 
  Country: None (occurrence: None)
  Receive Date: 20110321
  Receipt Date: 20110315
  Transmission Date: 20110831
  Serious: No
  Sender: FDA-Public Use
  Company Number: A0918594A

PATIENT
  Age: 28 Year
  Sex: Female

DRUGS (1)
  1. PAZOPANIB [Suspect]
     Dosage: 400MG PER DAY
     Route: 048
     Dates: start: 20101014, end: 20110202

REACTIONS (1)
  - SEPSIS [None]
